FAERS Safety Report 25661948 (Version 2)
Quarter: 2025Q3

REPORT INFORMATION
  Report Type: Spontaneous
  Country: US (occurrence: US)
  Receive Date: 20250809
  Receipt Date: 20250809
  Transmission Date: 20251021
  Serious: Yes (Other)
  Sender: AMGEN
  Company Number: US-AMGEN-USASP2025155325

PATIENT
  Age: 16 Year
  Sex: Male

DRUGS (36)
  1. TEPEZZA [Suspect]
     Active Substance: TEPROTUMUMAB-TRBW
     Indication: Endocrine ophthalmopathy
     Route: 040
     Dates: start: 20210513
  2. TEPEZZA [Suspect]
     Active Substance: TEPROTUMUMAB-TRBW
     Indication: Toxic goitre
     Dosage: 1500 MILLIGRAM, Q3WK (20MG/KG, SECOND INFUSION)
     Route: 040
     Dates: start: 20210603
  3. TEPEZZA [Suspect]
     Active Substance: TEPROTUMUMAB-TRBW
     Dosage: 1357.14 MILLIGRAM, Q3WK (20MG/KG, THIRD INFUSION)
     Route: 040
     Dates: start: 20210624
  4. TEPEZZA [Suspect]
     Active Substance: TEPROTUMUMAB-TRBW
     Dosage: 1357.14 MILLIGRAM, Q3WK (20MG/KG, FOURTH INFUSION)
     Route: 040
     Dates: start: 20210715
  5. TEPEZZA [Suspect]
     Active Substance: TEPROTUMUMAB-TRBW
     Dosage: 1357.14 MILLIGRAM, Q3WK (20MG/KG, FIFTH INFUSION)
     Route: 040
     Dates: start: 20210806
  6. TEPEZZA [Suspect]
     Active Substance: TEPROTUMUMAB-TRBW
     Dosage: 1357.14 MILLIGRAM, Q3WK  (20MG/KG, SIXTH INFUSION)
     Route: 040
     Dates: start: 20210901
  7. TEPEZZA [Suspect]
     Active Substance: TEPROTUMUMAB-TRBW
     Dosage: 1357.14 MILLIGRAM, Q3WK (20MG/KG, SEVENTH INFUSION)
     Route: 040
     Dates: start: 20210922
  8. TEPEZZA [Suspect]
     Active Substance: TEPROTUMUMAB-TRBW
     Dosage: 1500 MILLIGRAM, Q3WK (20MG/KG, EIGHTH INFUSION)
     Route: 040
     Dates: start: 20211013
  9. PREDNISONE [Suspect]
     Active Substance: PREDNISONE
     Indication: Product used for unknown indication
     Route: 065
  10. ACYCLOVIR [Concomitant]
     Active Substance: ACYCLOVIR
     Dosage: 400 MILLIGRAM, BID
  11. KETOCONAZOLE [Concomitant]
     Active Substance: KETOCONAZOLE
  12. CLOBETASOL [Concomitant]
     Active Substance: CLOBETASOL
  13. METOPROLOL SUCCINATE [Concomitant]
     Active Substance: METOPROLOL SUCCINATE
     Dosage: 25 MILLIGRAM, QD
     Route: 048
  14. LOSARTAN [Concomitant]
     Active Substance: LOSARTAN
     Route: 048
  15. TESTOSTERONE CYPIONATE [Concomitant]
     Active Substance: TESTOSTERONE CYPIONATE
  16. FLOMAX [Concomitant]
     Active Substance: TAMSULOSIN HYDROCHLORIDE
     Route: 048
  17. METHIMAZOLE [Concomitant]
     Active Substance: METHIMAZOLE
     Dosage: 30 MILLIGRAM, QD
     Route: 048
  18. OXYCODONE [Concomitant]
     Active Substance: OXYCODONE
     Route: 048
  19. EPIVIR [Concomitant]
     Active Substance: LAMIVUDINE
     Dosage: 300 MILLIGRAM, QD
     Route: 048
  20. DILAUDID [Concomitant]
     Active Substance: HYDROMORPHONE HYDROCHLORIDE
     Route: 065
  21. ATIVAN [Concomitant]
     Active Substance: LORAZEPAM
  22. SODIUM CHLORIDE [Concomitant]
     Active Substance: SODIUM CHLORIDE
  23. NORVASC [Concomitant]
     Active Substance: AMLODIPINE BESYLATE
  24. ADDERALL [Concomitant]
     Active Substance: AMPHETAMINE ASPARTATE\AMPHETAMINE SULFATE\DEXTROAMPHETAMINE SACCHARATE\DEXTROAMPHETAMINE SULFATE
  25. BENICAR [Concomitant]
     Active Substance: OLMESARTAN MEDOXOMIL
  26. CIALIS [Concomitant]
     Active Substance: TADALAFIL
  27. PREZISTA [Concomitant]
     Active Substance: DARUNAVIR ETHANOLATE
  28. BARACLUDE [Concomitant]
     Active Substance: ENTECAVIR
  29. NORVIR [Concomitant]
     Active Substance: RITONAVIR
  30. ISENTRESS [Concomitant]
     Active Substance: RALTEGRAVIR POTASSIUM
  31. ZOFRAN [Concomitant]
     Active Substance: ONDANSETRON HYDROCHLORIDE
  32. SOLU-CORTEF [Concomitant]
     Active Substance: HYDROCORTISONE SODIUM SUCCINATE
  33. PEPCID [Concomitant]
     Active Substance: FAMOTIDINE
  34. EPIPEN [Concomitant]
     Active Substance: EPINEPHRINE
  35. BENADRYL [Concomitant]
     Active Substance: DIPHENHYDRAMINE HYDROCHLORIDE
  36. TYLENOL [Concomitant]
     Active Substance: ACETAMINOPHEN

REACTIONS (38)
  - HIV infection [Unknown]
  - Haematochezia [Unknown]
  - Hyperthyroidism [Unknown]
  - Endocrine ophthalmopathy [Unknown]
  - Toxic goitre [Unknown]
  - Hepatitis B [Unknown]
  - Syphilis [Unknown]
  - Endocrine ophthalmopathy [Unknown]
  - Anxiety disorder [Unknown]
  - Appendicectomy [Unknown]
  - Genital herpes [Not Recovered/Not Resolved]
  - Adjustment disorder with depressed mood [Unknown]
  - Hepatitis A [Unknown]
  - Panic attack [Unknown]
  - Headache [Unknown]
  - Insomnia [Unknown]
  - Anal skin tag excision [Unknown]
  - Attention deficit hyperactivity disorder [Unknown]
  - Essential hypertension [Unknown]
  - Anal fissure [Unknown]
  - Dizziness [Unknown]
  - Lethargy [Unknown]
  - Tachycardia [Unknown]
  - Weight decreased [Unknown]
  - Temperature intolerance [Unknown]
  - Gastrooesophageal reflux disease [Recovered/Resolved]
  - Nephropathy [Unknown]
  - Psoriasis [Unknown]
  - Furuncle [Unknown]
  - Hypogonadism [Unknown]
  - Spinal osteoarthritis [Unknown]
  - Fatigue [Unknown]
  - Muscle spasms [Unknown]
  - Hypoacusis [Unknown]
  - Onychoclasis [Unknown]
  - Drug ineffective [Unknown]
  - Psychomotor hyperactivity [Unknown]
  - Bronchitis [Unknown]

NARRATIVE: CASE EVENT DATE: 20020101
